FAERS Safety Report 20140013 (Version 1)
Quarter: 2021Q4

REPORT INFORMATION
  Report Type: Spontaneous
  Country: HR (occurrence: HR)
  Receive Date: 20211202
  Receipt Date: 20211202
  Transmission Date: 20220303
  Serious: Yes (Other)
  Sender: FDA-Public Use
  Company Number: None

PATIENT

DRUGS (2)
  1. BUPRENORPHINE [Suspect]
     Active Substance: BUPRENORPHINE
     Indication: Product used for unknown indication
     Dosage: UNK
     Route: 048
     Dates: start: 20210719, end: 20210719
  2. LYRICA [Suspect]
     Active Substance: PREGABALIN
     Indication: Product used for unknown indication
     Dosage: UNK,(WHOLE BOX)
     Route: 048
     Dates: start: 20210719, end: 20210719

REACTIONS (7)
  - Suicide attempt [Unknown]
  - Intentional overdose [Unknown]
  - Mydriasis [Unknown]
  - Somnolence [Unknown]
  - Tachycardia [Unknown]
  - Off label use [Recovered/Resolved]
  - Drug abuse [Unknown]

NARRATIVE: CASE EVENT DATE: 20210719
